FAERS Safety Report 9555366 (Version 1)
Quarter: 2013Q3

REPORT INFORMATION
  Report Type: Spontaneous
  Country: US (occurrence: None)
  Receive Date: 20130816
  Receipt Date: 20130816
  Transmission Date: 20140515
  Serious: No
  Sender: FDA-Public Use
  Company Number: US-011969

PATIENT
  Sex: 0

DRUGS (14)
  1. PICO-SALAX (NOT SPECIFIED) [Suspect]
     Indication: BOWEL PREPARATION
     Dosage: (1 PACKET MIXED WITH 5OZ OF WATER X 2)?
     Dates: start: 20130606, end: 20130606
  2. BENTYL [Concomitant]
  3. XANAX [Concomitant]
  4. SINGULAIR [Concomitant]
  5. BENADRYL /01563701/ [Concomitant]
  6. ACIDOPHYLUS [Concomitant]
  7. PRILOSEC /00661201/ [Concomitant]
  8. FIBERCON [Concomitant]
  9. E VITAMIN [Concomitant]
  10. BETA CAROTENE [Concomitant]
  11. OMEGA 3 /01334101/ [Concomitant]
  12. D VITAMIN NATURE MADE [Concomitant]
  13. NATUREMADE VITAMIN C [Concomitant]
  14. GARLIC /01570504/ [Concomitant]

REACTIONS (1)
  - Diarrhoea [None]
